FAERS Safety Report 5860073-6 (Version None)
Quarter: 2008Q3

REPORT INFORMATION
  Report Type: 
  Country: None (occurrence: None)
  Receive Date: 20080827
  Receipt Date: 20080819
  Transmission Date: 20090109
  Serious: Yes (Hospitalization, Other)
  Sender: FDA-Public Use
  Company Number: US-JNJFOC-20071203113

PATIENT
  Sex: Female
  Weight: 92.53 kg

DRUGS (16)
  1. REMICADE [Suspect]
     Dosage: 5 VIALS
     Route: 042
  2. REMICADE [Suspect]
     Indication: RHEUMATOID ARTHRITIS
     Dosage: 5 VIALS
     Route: 042
  3. METHOTREXATE [Suspect]
     Indication: RHEUMATOID ARTHRITIS
     Dosage: 6 MONTHS
  4. NSAIDS [Concomitant]
     Dosage: 6 MONTHS
  5. PREDNISONE TAB [Concomitant]
  6. LASIX [Concomitant]
  7. ASPIRIN [Concomitant]
  8. ZOCOR [Concomitant]
  9. ASPIRIN [Concomitant]
  10. FOLIC ACID [Concomitant]
  11. LOPRESSOR [Concomitant]
  12. CALCIUM [Concomitant]
  13. OMEGA 3 FATTY ACIDS [Concomitant]
  14. MULTI-VITAMIN [Concomitant]
  15. ARAVA [Concomitant]
  16. CALCIUM WITH D [Concomitant]

REACTIONS (6)
  - IMPAIRED HEALING [None]
  - INTERSTITIAL LUNG DISEASE [None]
  - LUMBAR SPINAL STENOSIS [None]
  - SCIATICA [None]
  - SLEEP APNOEA SYNDROME [None]
  - WOUND DEHISCENCE [None]
